FAERS Safety Report 7548819-2 (Version None)
Quarter: 2011Q2

REPORT INFORMATION
  Report Type: 
  Country: None (occurrence: None)
  Receive Date: 20110615
  Receipt Date: 20110531
  Transmission Date: 20111010
  Serious: Yes (Other)
  Sender: FDA-Public Use
  Company Number: US-JNJFOC-20110600636

PATIENT
  Age: 42 Year
  Sex: Male

DRUGS (2)
  1. REMICADE [Suspect]
     Indication: CROHN'S DISEASE
     Route: 042
  2. CYCLOSPORINE [Concomitant]

REACTIONS (3)
  - PYODERMA GANGRENOSUM [None]
  - INTESTINAL ANASTOMOSIS [None]
  - DRUG INEFFECTIVE [None]
